FAERS Safety Report 6845791-5 (Version None)
Quarter: 2010Q3

REPORT INFORMATION
  Report Type: 
  Country: None (occurrence: None)
  Receive Date: 20100715
  Receipt Date: 20080303
  Transmission Date: 20110219
  Serious: No
  Sender: FDA-Public Use
  Company Number: US-PFIZER INC-2007072727

PATIENT
  Sex: Male
  Weight: 90.9 kg

DRUGS (6)
  1. CHANTIX [Suspect]
     Indication: SMOKING CESSATION THERAPY
     Dates: start: 20070825
  2. SYNTHROID [Concomitant]
  3. EFFEXOR [Concomitant]
  4. LITHIUM [Concomitant]
  5. NEURONTIN [Concomitant]
  6. ALL OTHER THERAPEUTIC PRODUCTS [Concomitant]

REACTIONS (11)
  - ASTHENIA [None]
  - DEPRESSION [None]
  - DIZZINESS [None]
  - FEELING ABNORMAL [None]
  - INAPPROPRIATE SCHEDULE OF DRUG ADMINISTRATION [None]
  - INFLUENZA LIKE ILLNESS [None]
  - MALAISE [None]
  - MEDICATION ERROR [None]
  - MOOD ALTERED [None]
  - NAUSEA [None]
  - PAIN [None]
